FAERS Safety Report 16629997 (Version 1)
Quarter: 2019Q3

REPORT INFORMATION
  Report Type: Spontaneous
  Country: DE (occurrence: DE)
  Receive Date: 20190725
  Receipt Date: 20190725
  Transmission Date: 20191004
  Serious: Yes (Other)
  Sender: FDA-Public Use
  Company Number: DE-SUN PHARMACEUTICAL INDUSTRIES LTD-2019R1-213838

PATIENT
  Age: 18 Year
  Sex: Female

DRUGS (4)
  1. PERAMPANEL [Interacting]
     Active Substance: PERAMPANEL
     Indication: LAFORA^S MYOCLONIC EPILEPSY
     Dosage: UNK
     Route: 065
  2. TOPIRAMATE. [Suspect]
     Active Substance: TOPIRAMATE
     Indication: LAFORA^S MYOCLONIC EPILEPSY
     Dosage: UNK
     Route: 065
  3. CLOBAZAM. [Interacting]
     Active Substance: CLOBAZAM
     Indication: LAFORA^S MYOCLONIC EPILEPSY
     Dosage: UNK
     Route: 065
  4. VALPROIC ACID. [Interacting]
     Active Substance: VALPROIC ACID
     Indication: LAFORA^S MYOCLONIC EPILEPSY
     Dosage: UNK
     Route: 065

REACTIONS (5)
  - Drug interaction [Unknown]
  - Hypoproteinaemia [Recovering/Resolving]
  - Toxicity to various agents [Recovering/Resolving]
  - Condition aggravated [Recovering/Resolving]
  - Proteinuria [Recovering/Resolving]
